FAERS Safety Report 9406928 (Version 1)
Quarter: 2013Q3

REPORT INFORMATION
  Report Type: Spontaneous
  Country: US (occurrence: US)
  Receive Date: 20130718
  Receipt Date: 20130718
  Transmission Date: 20140515
  Serious: No
  Sender: FDA-Public Use
  Company Number: US-PFIZER INC-2013210351

PATIENT
  Age: 55 Year
  Sex: Female
  Weight: 81.63 kg

DRUGS (1)
  1. CELEBREX [Suspect]
     Indication: SPONDYLITIS
     Dosage: 300 MG, 1X/DAY
     Dates: end: 201306

REACTIONS (6)
  - Cough [Not Recovered/Not Resolved]
  - Eye irritation [Not Recovered/Not Resolved]
  - Hypersensitivity [Recovered/Resolved]
  - Malaise [Recovered/Resolved]
  - Nasopharyngitis [Recovered/Resolved]
  - Sinusitis [Recovered/Resolved]
